FAERS Safety Report 9005065 (Version 1)
Quarter: 2013Q1

REPORT INFORMATION
  Report Type: Spontaneous
  Country: US (occurrence: None)
  Receive Date: 20130107
  Receipt Date: 20130107
  Transmission Date: 20140127
  Serious: Yes (Congenital Anomaly)
  Sender: FDA-Public Use
  Company Number: None

PATIENT
  Age: 36 Year
  Sex: Female
  Weight: 90.72 kg

DRUGS (1)
  1. LATUDA [Suspect]
     Indication: SCHIZOAFFECTIVE DISORDER

REACTIONS (6)
  - Pre-eclampsia [None]
  - Thrombocytopenia [None]
  - Purpura [None]
  - Foetal growth restriction [None]
  - Necrotising colitis [None]
  - Exposure during pregnancy [None]
